FAERS Safety Report 8270048-8 (Version None)
Quarter: 2012Q2

REPORT INFORMATION
  Report Type: 
  Country: None (occurrence: None)
  Receive Date: 20120410
  Receipt Date: 20120330
  Transmission Date: 20120825
  Serious: Yes (Hospitalization)
  Sender: FDA-Public Use
  Company Number: US-SANOFI-AVENTIS-2012SA022186

PATIENT
  Age: 79 Year
  Sex: Male

DRUGS (2)
  1. SOLOSTAR [Suspect]
  2. LANTUS [Suspect]
     Dosage: DOSE:7 UNIT(S)
     Route: 058

REACTIONS (3)
  - ROAD TRAFFIC ACCIDENT [None]
  - RIB FRACTURE [None]
  - PNEUMONIA [None]
